FAERS Safety Report 8943382 (Version 1)
Quarter: 2012Q4

REPORT INFORMATION
  Report Type: 
  Country: US (occurrence: US)
  Receive Date: 20121204
  Receipt Date: 20121204
  Transmission Date: 20130627
  Serious: Yes (Hospitalization, Congenital Anomaly, Other)
  Sender: FDA-Public Use
  Company Number: US-PFIZER INC-2012299272

PATIENT
  Age: 9 Day
  Sex: Female
  Weight: 3.5 kg

DRUGS (1)
  1. ZOLOFT [Suspect]
     Dosage: 50 mg
     Route: 064

REACTIONS (5)
  - Maternal exposure during pregnancy [Unknown]
  - Patent ductus arteriosus [Recovered/Resolved]
  - Cystic fibrosis [Unknown]
  - Atrial septal defect [Unknown]
  - Gastrooesophageal reflux disease [Unknown]
